FAERS Safety Report 23916590 (Version 1)
Quarter: 2024Q2

REPORT INFORMATION
  Report Type: Spontaneous
  Country: TH (occurrence: TH)
  Receive Date: 20240529
  Receipt Date: 20240529
  Transmission Date: 20240715
  Serious: Yes (Other)
  Sender: FDA-Public Use
  Company Number: TH-BAYER-2024A074289

PATIENT
  Age: 74 Year
  Sex: Male

DRUGS (12)
  1. FINERENONE [Suspect]
     Active Substance: FINERENONE
     Dosage: 10 MG, QD
     Dates: start: 20240203
  2. EZETIMIBE [Concomitant]
     Active Substance: EZETIMIBE
     Dosage: UNK, QD
  3. METFORMIN [Concomitant]
     Active Substance: METFORMIN HYDROCHLORIDE
  4. DAPAGLIFLOZIN [Concomitant]
     Active Substance: DAPAGLIFLOZIN
     Dosage: UNK, QD
  5. LINAGLIPTIN [Concomitant]
     Active Substance: LINAGLIPTIN
  6. LERCANIDIPINE [Concomitant]
     Active Substance: LERCANIDIPINE
     Dosage: 20 MG, QD
  7. CARVEDILOL [Concomitant]
     Active Substance: CARVEDILOL
     Dosage: 12.5 MG, BID
  8. AZILSARTAN KAMEDOXOMIL [Concomitant]
     Active Substance: AZILSARTAN KAMEDOXOMIL
     Dosage: 40 MG, QD
  9. CARDURA XL [Concomitant]
     Active Substance: DOXAZOSIN MESYLATE
     Dosage: 4 MG, QD
  10. ATORVASTATIN [Concomitant]
     Active Substance: ATORVASTATIN
     Dosage: 40 MG, QD
  11. VITAMIN D2 [Concomitant]
     Active Substance: ERGOCALCIFEROL
  12. Sodamint [Concomitant]
     Dosage: UNK UNK, BID

REACTIONS (2)
  - Glomerular filtration rate decreased [None]
  - Blood creatinine increased [None]
